FAERS Safety Report 23283971 (Version 3)
Quarter: 2024Q2

REPORT INFORMATION
  Report Type: Spontaneous
  Country: US (occurrence: US)
  Receive Date: 20231211
  Receipt Date: 20240428
  Transmission Date: 20240715
  Serious: Yes (Other)
  Sender: FDA-Public Use
  Company Number: US-BRISTOL-MYERS SQUIBB COMPANY-2023-178742

PATIENT
  Age: 75 Year
  Sex: Female

DRUGS (1)
  1. REVLIMID [Suspect]
     Active Substance: LENALIDOMIDE
     Indication: Plasma cell myeloma
     Dosage: TAKE 1 CAPSULE BY MOUTH EVERY 72 HOURS ON DAYS 1-21 THEN ONE WEEK OFF
     Route: 048

REACTIONS (3)
  - Nephrolithiasis [Recovered/Resolved]
  - Off label use [Unknown]
  - Product dose omission issue [Unknown]
